FAERS Safety Report 14274111 (Version 4)
Quarter: 2018Q4

REPORT INFORMATION
  Report Type: Spontaneous
  Country: US (occurrence: US)
  Receive Date: 20171211
  Receipt Date: 20181218
  Transmission Date: 20190204
  Serious: Yes (Disabling, Other)
  Sender: FDA-Public Use
  Company Number: US-OTSUKA-2016_029870

PATIENT
  Sex: Male
  Weight: 111.1 kg

DRUGS (6)
  1. ABILIFY [Suspect]
     Active Substance: ARIPIPRAZOLE
     Indication: OBSESSIVE-COMPULSIVE DISORDER
     Dosage: 20 MG, QD
     Route: 065
  2. ABILIFY [Suspect]
     Active Substance: ARIPIPRAZOLE
     Dosage: UNK QD
     Route: 065
     Dates: end: 201412
  3. ABILIFY [Suspect]
     Active Substance: ARIPIPRAZOLE
     Indication: DEPRESSION
     Dosage: 2 MG, QD
     Route: 065
     Dates: start: 200706
  4. ZOLOFT [Concomitant]
     Active Substance: SERTRALINE HYDROCHLORIDE
     Indication: PRODUCT USED FOR UNKNOWN INDICATION
     Dosage: UNK, QD
     Route: 065
  5. ABILIFY [Suspect]
     Active Substance: ARIPIPRAZOLE
     Dosage: 10 MG, QD
     Route: 065
  6. DEPAKOTE [Concomitant]
     Active Substance: DIVALPROEX SODIUM
     Indication: PRODUCT USED FOR UNKNOWN INDICATION
     Dosage: UNK
     Route: 065

REACTIONS (20)
  - Fear [Unknown]
  - Fatigue [Not Recovered/Not Resolved]
  - Blood pressure increased [Unknown]
  - Eating disorder [Not Recovered/Not Resolved]
  - Compulsive shopping [Not Recovered/Not Resolved]
  - Gambling disorder [Not Recovered/Not Resolved]
  - Wrong technique in product usage process [Unknown]
  - Increased appetite [Not Recovered/Not Resolved]
  - Anxiety [Unknown]
  - Personal relationship issue [Unknown]
  - Disability [Unknown]
  - Pain [Unknown]
  - Hypersomnia [Not Recovered/Not Resolved]
  - Emotional distress [Unknown]
  - Weight increased [Unknown]
  - Product use in unapproved indication [Unknown]
  - Condition aggravated [Unknown]
  - Product dose omission [Unknown]
  - Economic problem [Unknown]
  - Social problem [Unknown]

NARRATIVE: CASE EVENT DATE: 2007
